FAERS Safety Report 7929763-5 (Version None)
Quarter: 2011Q4

REPORT INFORMATION
  Report Type: 
  Country: None (occurrence: None)
  Receive Date: 20111121
  Receipt Date: 20111116
  Transmission Date: 20120403
  Serious: Yes (Congenital Anomaly, Other)
  Sender: FDA-Public Use
  Company Number: US-PFIZER INC-2011281026

PATIENT
  Sex: Male

DRUGS (1)
  1. ZOLOFT [Suspect]
     Dosage: UNK
     Route: 064
     Dates: start: 20070901, end: 20071101

REACTIONS (4)
  - MATERNAL EXPOSURE TIMING UNSPECIFIED [None]
  - TALIPES [None]
  - FOETAL EXPOSURE TIMING UNSPECIFIED [None]
  - LIMB MALFORMATION [None]
